FAERS Safety Report 4490988-5 (Version None)
Quarter: 2004Q4

REPORT INFORMATION
  Report Type: 
  Country: None (occurrence: None)
  Receive Date: 20041027
  Receipt Date: 20041014
  Transmission Date: 20050328
  Serious: Yes (Death)
  Sender: FDA-Public Use
  Company Number: 2001073441FR

PATIENT
  Age: 80 Year
  Sex: Female

DRUGS (3)
  1. CELEBREX [Suspect]
     Indication: ARTHROPATHY
     Dosage: 200 MG,QD, ORAL
     Route: 048
  2. DILTIAZEM [Concomitant]
  3. TRINITRINE [Concomitant]

REACTIONS (1)
  - CARDIAC DISORDER [None]
